FAERS Safety Report 24913547 (Version 1)
Quarter: 2025Q1

REPORT INFORMATION
  Report Type: Report from Study
  Country: ES (occurrence: ES)
  Receive Date: 20250201
  Receipt Date: 20250201
  Transmission Date: 20250408
  Serious: Yes (Death, Other)
  Sender: ABBVIE
  Company Number: ES-JNJFOC-20250171943

PATIENT

DRUGS (2)
  1. IMBRUVICA [Suspect]
     Active Substance: IBRUTINIB
     Indication: Chronic lymphocytic leukaemia
     Route: 048
  2. IMBRUVICA [Suspect]
     Active Substance: IBRUTINIB
     Indication: Chronic lymphocytic leukaemia
     Route: 048

REACTIONS (25)
  - Death [Fatal]
  - Stomatitis [Unknown]
  - Atrial fibrillation [Unknown]
  - Arthralgia [Unknown]
  - COVID-19 [Unknown]
  - Diarrhoea [Unknown]
  - Haemorrhage [Unknown]
  - Palpitations [Unknown]
  - Hypertension [Unknown]
  - Asthenia [Unknown]
  - Richter^s syndrome [Unknown]
  - Renal failure [Unknown]
  - Neutropenia [Unknown]
  - Pericardial effusion [Unknown]
  - Hypertransaminasaemia [Unknown]
  - Myalgia [Unknown]
  - Skin toxicity [Unknown]
  - Cellulitis [Unknown]
  - Adverse event [Unknown]
  - Toxicity to various agents [Unknown]
  - Thrombocytopenia [Unknown]
  - Pneumonia [Unknown]
  - Chronic lymphocytic leukaemia [Unknown]
  - Arrhythmia [Unknown]
  - Mouth ulceration [Unknown]
